FAERS Safety Report 8603473-3 (Version None)
Quarter: 2012Q3

REPORT INFORMATION
  Report Type: 
  Country: None (occurrence: None)
  Receive Date: 20120817
  Receipt Date: 20120807
  Transmission Date: 20120928
  Serious: No
  Sender: FDA-Public Use
  Company Number: US-ASTRAZENECA-1998AU05033

PATIENT
  Age: 80 Year
  Sex: Female
  Weight: 52.2 kg

DRUGS (10)
  1. VITAMIN D [Concomitant]
  2. TOPROL-XL [Suspect]
     Indication: HYPERTENSION
     Route: 048
     Dates: start: 19980515
  3. CRESTOR [Suspect]
     Route: 048
     Dates: start: 20120719
  4. CRESTOR [Suspect]
     Dosage: ONE TABLET THREE TO FOUR TIMES WEEKLY
     Route: 048
  5. ASCORBIC ACID [Concomitant]
  6. ASPIRIN [Concomitant]
  7. LIPITOR [Concomitant]
     Indication: BLOOD CHOLESTEROL INCREASED
     Route: 065
  8. ACCUPRIL [Concomitant]
     Indication: HYPERTENSION
     Route: 065
  9. TRIAVIL [Concomitant]
  10. IRON [Concomitant]

REACTIONS (5)
  - TINNITUS [None]
  - DYSPHONIA [None]
  - WEIGHT INCREASED [None]
  - EAR DISCOMFORT [None]
  - ALOPECIA [None]
